FAERS Safety Report 7508451-3 (Version None)
Quarter: 2011Q2

REPORT INFORMATION
  Report Type: 
  Country: None (occurrence: None)
  Receive Date: 20110527
  Receipt Date: 20110517
  Transmission Date: 20111010
  Serious: Yes (Other)
  Sender: FDA-Public Use
  Company Number: US-NOVOPROD-326424

PATIENT
  Sex: Female
  Weight: 8.2 kg

DRUGS (3)
  1. NORDITROPIN NORDIFLEX [Suspect]
     Dosage: .5 MG, QD
     Route: 058
     Dates: start: 20100517
  2. NORDITROPIN NORDIFLEX [Suspect]
     Dosage: UNK
  3. SYNTHROID [Concomitant]
     Indication: HYPOTHYROIDISM
     Dosage: 25 MCG, QD
     Route: 048
     Dates: start: 20100501

REACTIONS (1)
  - HEPATIC CALCIFICATION [None]
